FAERS Safety Report 14726607 (Version 1)
Quarter: 2018Q2

REPORT INFORMATION
  Report Type: Spontaneous
  Country: FR (occurrence: FR)
  Receive Date: 20180406
  Receipt Date: 20180406
  Transmission Date: 20180711
  Serious: Yes (Death)
  Sender: FDA-Public Use
  Company Number: FR-CIPLA LTD.-2018FR14713

PATIENT

DRUGS (3)
  1. PACLITAXEL. [Suspect]
     Active Substance: PACLITAXEL
     Indication: SKIN CANCER METASTATIC
     Dosage: UNK
  2. SUNITINIB [Suspect]
     Active Substance: SUNITINIB
     Indication: SKIN CANCER METASTATIC
     Dosage: UNK
  3. CARBOPLATIN. [Suspect]
     Active Substance: CARBOPLATIN
     Indication: SKIN CANCER METASTATIC
     Dosage: UNK

REACTIONS (1)
  - Death [Fatal]
